FAERS Safety Report 8066371-2 (Version None)
Quarter: 2012Q1

REPORT INFORMATION
  Report Type: 
  Country: None (occurrence: None)
  Receive Date: 20120124
  Receipt Date: 20120119
  Transmission Date: 20120608
  Serious: No
  Sender: FDA-Public Use
  Company Number: US-BAYER-2011-001091

PATIENT
  Age: 31 Year
  Sex: Female
  Weight: 135 kg

DRUGS (1)
  1. MIRENA [Suspect]
     Dosage: UNK

REACTIONS (2)
  - DEVICE DIFFICULT TO USE [None]
  - PROCEDURAL PAIN [None]
